FAERS Safety Report 5038337-8 (Version None)
Quarter: 2006Q2

REPORT INFORMATION
  Report Type: 
  Country: None (occurrence: None)
  Receive Date: 20060627
  Receipt Date: 20060627
  Transmission Date: 20061013
  Serious: Yes (Other)
  Sender: FDA-Public Use
  Company Number: None

PATIENT
  Age: 75 Year
  Sex: Male
  Weight: 109.7705 kg

DRUGS (3)
  1. GLYBURIDE [Suspect]
     Dosage: 2.5 MG QD PO
     Route: 048
  2. ROSIGLITAZONE [Suspect]
     Dosage: 8 MG QD PO
     Route: 048
  3. METFORMIN 1000 MG PO BID [Suspect]
     Dosage: 1000 MG PO BID

REACTIONS (3)
  - HYPOGLYCAEMIA [None]
  - MEDICATION ERROR [None]
  - SYNCOPE [None]
